FAERS Safety Report 10330906 (Version 2)
Quarter: 2014Q3

REPORT INFORMATION
  Report Type: Spontaneous
  Country: JP (occurrence: JP)
  Receive Date: 20140722
  Receipt Date: 20140722
  Transmission Date: 20150326
  Serious: Yes (Hospitalization)
  Sender: FDA-Public Use
  Company Number: PHJP2014JP000912

PATIENT
  Age: 52 Year
  Sex: Male

DRUGS (12)
  1. HARNAL [Concomitant]
     Active Substance: TAMSULOSIN HYDROCHLORIDE
     Dosage: UNK UKN, UNK
     Route: 048
  2. DEPAKENE [Concomitant]
     Active Substance: VALPROIC ACID
     Dosage: UNK UKN, UNK
     Route: 048
  3. EURODIN [Concomitant]
     Active Substance: ESTAZOLAM
     Dosage: UNK UKN, UNK
     Route: 048
  4. NIFEDIPINE LA [Concomitant]
     Dosage: UNK UKN, UNK
     Route: 048
  5. GASTER [Concomitant]
     Active Substance: FAMOTIDINE
     Dosage: UNK UKN, UNK
     Route: 048
  6. SERMION [Concomitant]
     Active Substance: NICERGOLINE
     Dosage: UNK UKN, UNK
     Route: 048
  7. TEGRETOL [Suspect]
     Active Substance: CARBAMAZEPINE
     Dosage: UNK UKN, UNK
     Route: 048
  8. EBRANTIL [Concomitant]
     Active Substance: URAPIDIL
     Dosage: UNK UKN, UNK
     Route: 048
  9. EVAMYL [Concomitant]
     Active Substance: LORMETAZEPAM
     Dosage: UNK UKN, UNK
     Route: 048
  10. PLAVIX [Concomitant]
     Active Substance: CLOPIDOGREL BISULFATE
     Dosage: UNK UKN, UNK
     Route: 048
  11. PREMINENT [Concomitant]
     Active Substance: HYDROCHLOROTHIAZIDE\LOSARTAN POTASSIUM
     Dosage: UNK UKN, UNK
     Route: 048
  12. AMARYL [Concomitant]
     Active Substance: GLIMEPIRIDE
     Dosage: UNK UKN, UNK
     Route: 048

REACTIONS (4)
  - Delusion [Unknown]
  - Loss of consciousness [Recovered/Resolved]
  - Hyponatraemia [Unknown]
  - Aggression [Unknown]

NARRATIVE: CASE EVENT DATE: 20140630
